FAERS Safety Report 23650399 (Version 6)
Quarter: 2024Q2

REPORT INFORMATION
  Report Type: Report from Study
  Country: CH (occurrence: CH)
  Receive Date: 20240320
  Receipt Date: 20240624
  Transmission Date: 20240715
  Serious: Yes (Hospitalization)
  Sender: FDA-Public Use
  Company Number: CH-ABBVIE-5682556

PATIENT
  Age: 68 Year
  Sex: Male

DRUGS (6)
  1. CARBIDOPA\LEVODOPA [Suspect]
     Active Substance: CARBIDOPA\LEVODOPA
     Indication: Parkinson^s disease
     Dosage: MD: 7.5 ML, CRD: 3.1 ML/H,  ED: 1.3 ML?16H THERAPY
     Route: 050
     Dates: start: 20240313, end: 20240416
  2. CARBIDOPA\LEVODOPA [Suspect]
     Active Substance: CARBIDOPA\LEVODOPA
     Dosage: MD: 7.5 ML, CRD: 3.2 ML/H,  ED: 1.3 ML?16H THERAPY
     Route: 050
     Dates: start: 20230926, end: 20240313
  3. CARBIDOPA\LEVODOPA [Suspect]
     Active Substance: CARBIDOPA\LEVODOPA
     Dosage: MD: 7.5 ML, CRD: 3.0 ML/H,  ED: 1.3 ML
     Route: 050
     Dates: start: 20240416, end: 20240604
  4. CARBIDOPA\LEVODOPA [Suspect]
     Active Substance: CARBIDOPA\LEVODOPA
     Route: 050
     Dates: start: 20211006
  5. CARBIDOPA\LEVODOPA [Suspect]
     Active Substance: CARBIDOPA\LEVODOPA
     Dosage: MD: 7.5 ML, CRD: 2.9 ML/H,  ED: 1.3 ML
     Route: 050
     Dates: start: 20240604, end: 20240617
  6. CARBIDOPA\LEVODOPA [Suspect]
     Active Substance: CARBIDOPA\LEVODOPA
     Dosage: MD: 7.5 ML, CRD: 2.8 ML/H,  ED: 1.3 ML?FREQUENCY TEXT: 16H THERAPY
     Route: 050
     Dates: start: 20240617

REACTIONS (9)
  - Joint dislocation [Recovered/Resolved]
  - Akinesia [Recovering/Resolving]
  - Fall [Unknown]
  - Freezing phenomenon [Recovered/Resolved]
  - Head injury [Unknown]
  - Weight decreased [Unknown]
  - Dyskinesia [Not Recovered/Not Resolved]
  - Dyskinesia [Recovered/Resolved]
  - Dyskinesia [Recovered/Resolved]

NARRATIVE: CASE EVENT DATE: 20231001
